FAERS Safety Report 5776989-5 (Version None)
Quarter: 2008Q2

REPORT INFORMATION
  Report Type: 
  Country: None (occurrence: None)
  Receive Date: 20080617
  Receipt Date: 20080617
  Transmission Date: 20081010
  Serious: Yes (Life-Threatening, Hospitalization, Disabling, Other)
  Sender: FDA-Public Use
  Company Number: None

PATIENT
  Sex: Male
  Weight: 69.4003 kg

DRUGS (1)
  1. DIGITEK 0.25MG BERTEK [Suspect]
     Indication: CORONARY ARTERY DISEASE
     Dosage: 0.25MG DAILY P.O./APPROX 5 YEARS TO PRESENT
     Route: 048

REACTIONS (4)
  - CARDIAC FAILURE [None]
  - DYSPNOEA EXERTIONAL [None]
  - FLUID RETENTION [None]
  - RESPIRATORY DISTRESS [None]
